FAERS Safety Report 6752802-4 (Version None)
Quarter: 2010Q2

REPORT INFORMATION
  Report Type: 
  Country: None (occurrence: None)
  Receive Date: 20100603
  Receipt Date: 20100519
  Transmission Date: 20101027
  Serious: Yes (Hospitalization)
  Sender: FDA-Public Use
  Company Number: MY-MYLANLABS-2010S1008852

PATIENT
  Age: 32 Year
  Sex: Female

DRUGS (3)
  1. LITHIUM CARBONATE [Suspect]
     Indication: BIPOLAR DISORDER
     Dosage: 300MG IN THE MORNING AND 600MG AT NIGHT
     Route: 065
  2. LORAZEPAM [Suspect]
     Indication: BIPOLAR DISORDER
     Dosage: 1MG TWICE DAILY AND 1.5MG AT NIGHT AS NEEDED
     Route: 065
  3. TRIHEXYPHENIDYL HCL [Suspect]
     Indication: BIPOLAR DISORDER
     Route: 065

REACTIONS (2)
  - NEUROLEPTIC MALIGNANT SYNDROME [None]
  - SPLENIC LESION [None]
